FAERS Safety Report 10056401 (Version 1)
Quarter: 2014Q2

REPORT INFORMATION
  Report Type: Spontaneous
  Country: CN (occurrence: CN)
  Receive Date: 20140403
  Receipt Date: 20140403
  Transmission Date: 20141212
  Serious: Yes (Hospitalization, Other)
  Sender: FDA-Public Use
  Company Number: CN-BAXTER-2014BAX016354

PATIENT
  Age: 67 Year
  Sex: Male

DRUGS (1)
  1. LOW CALCIUM PERITONEAL DIALYSIS SOLUTION ( LACTATE- G2.5%) [Suspect]
     Indication: PERITONEAL DIALYSIS
     Route: 033
     Dates: start: 20140320, end: 20140320

REACTIONS (4)
  - Cerebral thrombosis [Unknown]
  - Poor quality drug administered [Unknown]
  - Product contamination physical [Unknown]
  - Peritoneal cloudy effluent [Recovered/Resolved]
